FAERS Safety Report 17778750 (Version 1)
Quarter: 2020Q2

REPORT INFORMATION
  Report Type: Spontaneous
  Country: US (occurrence: US)
  Receive Date: 20200513
  Receipt Date: 20200513
  Transmission Date: 20200714
  Serious: Yes (Other)
  Sender: FDA-Public Use
  Company Number: US-ELI_LILLY_AND_COMPANY-US202005000739

PATIENT
  Sex: Male

DRUGS (2)
  1. HUMALOG [Suspect]
     Active Substance: INSULIN LISPRO
     Indication: PRODUCT USED FOR UNKNOWN INDICATION
     Dosage: 500 U, EVERY HOUR
     Route: 065
  2. HUMALOG [Suspect]
     Active Substance: INSULIN LISPRO
     Dosage: 500 U, EVERY HOUR
     Route: 065

REACTIONS (8)
  - Visual impairment [Unknown]
  - Myocardial infarction [Not Recovered/Not Resolved]
  - Nephropathy [Unknown]
  - Drug ineffective [Unknown]
  - Blood glucose increased [Not Recovered/Not Resolved]
  - Blood potassium increased [Unknown]
  - Post procedural infection [Not Recovered/Not Resolved]
  - Glycosylated haemoglobin increased [Unknown]
